FAERS Safety Report 13537028 (Version 1)
Quarter: 2017Q2

REPORT INFORMATION
  Report Type: Spontaneous
  Country: US (occurrence: US)
  Receive Date: 20170511
  Receipt Date: 20170511
  Transmission Date: 20170830
  Serious: Yes (Other)
  Sender: FDA-Public Use
  Company Number: US-PROCTER+GAMBLE-GS17049645

PATIENT
  Age: 61 Year
  Sex: Male

DRUGS (2)
  1. CALCIUM CARBONATE. [Suspect]
     Active Substance: CALCIUM CARBONATE
     Dosage: UNK, AS NEEDED
  2. CHOLECALCIFEROL [Suspect]
     Active Substance: CHOLECALCIFEROL

REACTIONS (16)
  - Granuloma [Recovering/Resolving]
  - Proteinuria [Recovering/Resolving]
  - Computerised tomogram abnormal [Recovering/Resolving]
  - Fatigue [Recovering/Resolving]
  - Pain [Recovering/Resolving]
  - Light chain analysis abnormal [Recovering/Resolving]
  - Acute kidney injury [Recovering/Resolving]
  - Dyspnoea exertional [Recovering/Resolving]
  - Normochromic normocytic anaemia [Recovering/Resolving]
  - Sarcoidosis [Recovering/Resolving]
  - Renal injury [Recovering/Resolving]
  - Abnormal loss of weight [Recovering/Resolving]
  - Blood calcium increased [Recovering/Resolving]
  - Arthralgia [Recovering/Resolving]
  - Haemoglobin decreased [Recovering/Resolving]
  - Blood creatinine increased [Recovering/Resolving]
